FAERS Safety Report 21229080 (Version 2)
Quarter: 2022Q3

REPORT INFORMATION
  Report Type: Report from Study
  Country: US (occurrence: US)
  Receive Date: 20220818
  Receipt Date: 20220905
  Transmission Date: 20221027
  Serious: Yes (Hospitalization, Other)
  Sender: FDA-Public Use
  Company Number: US-ABBVIE-22K-163-4494432-00

PATIENT
  Sex: Male

DRUGS (1)
  1. VENCLEXTA [Suspect]
     Active Substance: VENETOCLAX
     Indication: Acute myeloid leukaemia
     Route: 048
     Dates: start: 202207, end: 202208

REACTIONS (7)
  - Chest pain [Not Recovered/Not Resolved]
  - Illness [Unknown]
  - Hospice care [Unknown]
  - Acute myeloid leukaemia [Recovering/Resolving]
  - Asthenia [Unknown]
  - Urinary tract disorder [Unknown]
  - Aphasia [Unknown]

NARRATIVE: CASE EVENT DATE: 20220101
